FAERS Safety Report 11556244 (Version 2)
Quarter: 2015Q3

REPORT INFORMATION
  Report Type: Spontaneous
  Country: US (occurrence: US)
  Receive Date: 20150916
  Receipt Date: 20150916
  Transmission Date: 20151125
  Serious: No
  Sender: FDA-Public Use
  Company Number: US-ELI_LILLY_AND_COMPANY-US200805000347

PATIENT
  Age: 85 Year
  Sex: Female

DRUGS (10)
  1. DILTIAZEM [Concomitant]
     Active Substance: DILTIAZEM
     Dosage: 60 MG, UNK
  2. LYRICA [Concomitant]
     Active Substance: PREGABALIN
  3. PREVACID [Concomitant]
     Active Substance: LANSOPRAZOLE
     Dosage: 30 MG, 2/D
  4. FORTEO [Suspect]
     Active Substance: TERIPARATIDE
     Indication: OSTEOPOROSIS
     Dosage: 20 UG, DAILY (1/D)
     Dates: start: 20070719, end: 200804
  5. MIACALCIN [Concomitant]
     Active Substance: CALCITONIN SALMON
     Dosage: UNK, DAILY (1/D)
     Route: 045
  6. RANITIDINE [Concomitant]
     Active Substance: RANITIDINE\RANITIDINE HYDROCHLORIDE
     Dosage: 150 MG, DAILY (1/D)
  7. SINGULAIR [Concomitant]
     Active Substance: MONTELUKAST SODIUM
     Dosage: 5 MG, 2/D
  8. FORTEO [Suspect]
     Active Substance: TERIPARATIDE
     Dosage: 20 UG, DAILY (1/D)
     Dates: start: 200804
  9. NEURONTIN [Concomitant]
     Active Substance: GABAPENTIN
     Dosage: 400 MG, DAILY (1/D)
  10. BENICAR [Concomitant]
     Active Substance: OLMESARTAN MEDOXOMIL

REACTIONS (16)
  - Hallucination [Recovered/Resolved]
  - Headache [Unknown]
  - Chest pain [Unknown]
  - Eye haemorrhage [Unknown]
  - Pain [Unknown]
  - Musculoskeletal pain [Unknown]
  - Rhinitis [Unknown]
  - Pain in extremity [Unknown]
  - Cough [Unknown]
  - Skin disorder [Unknown]
  - Tenderness [Unknown]
  - Varicose vein [Unknown]
  - Weight decreased [Unknown]
  - Urinary incontinence [Unknown]
  - Appetite disorder [Unknown]
  - Sinusitis [Unknown]

NARRATIVE: CASE EVENT DATE: 200710
